FAERS Safety Report 6983403-0 (Version None)
Quarter: 2010Q3

REPORT INFORMATION
  Report Type: 
  Country: None (occurrence: None)
  Receive Date: 20100914
  Receipt Date: 20100914
  Transmission Date: 20110219
  Serious: Yes (Life-Threatening)
  Sender: FDA-Public Use
  Company Number: None

PATIENT
  Sex: Female
  Weight: 56.6996 kg

DRUGS (1)
  1. PROAIR HFA [Suspect]
     Indication: ASTHMA
     Dosage: 1 PUFFS 4HRS OR AS NEEDED
     Dates: start: 20100908, end: 20100908

REACTIONS (3)
  - ANAPHYLACTIC SHOCK [None]
  - DRUG INEFFECTIVE [None]
  - PHARYNGEAL OEDEMA [None]
